FAERS Safety Report 22647674 (Version 4)
Quarter: 2024Q1

REPORT INFORMATION
  Report Type: Report from Study
  Country: KR (occurrence: KR)
  Receive Date: 20230628
  Receipt Date: 20240126
  Transmission Date: 20240410
  Serious: Yes (Hospitalization, Other)
  Sender: FDA-Public Use
  Company Number: KR-CELLTRION INC.-2023KR012227

PATIENT

DRUGS (74)
  1. INFLIXIMAB [Suspect]
     Active Substance: INFLIXIMAB
     Indication: Rheumatoid arthritis
     Dosage: 120 MILLIGRAM, 1/2 WEEK/ FOR 2 WEEK
     Route: 058
     Dates: start: 20230117, end: 20230530
  2. INFLIXIMAB [Suspect]
     Active Substance: INFLIXIMAB
     Dosage: UNK
     Route: 058
     Dates: start: 20230202, end: 20230208
  3. INFLIXIMAB [Suspect]
     Active Substance: INFLIXIMAB
     Dosage: 120 MG, Q2WEEKS
     Route: 058
     Dates: start: 20230315, end: 20230401
  4. INFLIXIMAB [Suspect]
     Active Substance: INFLIXIMAB
     Dosage: UNK
     Route: 058
     Dates: start: 20231127
  5. UPADACITINIB [Suspect]
     Active Substance: UPADACITINIB
     Indication: Product used for unknown indication
     Dosage: 15 MG, QD
     Route: 048
     Dates: start: 20230711
  6. PITAVASTATIN CALCIUM [Concomitant]
     Active Substance: PITAVASTATIN CALCIUM
     Indication: Hyperlipidaemia
     Dosage: 2 MILLIGRAM, QD
     Route: 048
     Dates: start: 20201117
  7. LINAGLIPTIN [Concomitant]
     Active Substance: LINAGLIPTIN
     Indication: Diabetes mellitus
     Dosage: 5 MILLIGRAM, QD
     Route: 048
     Dates: start: 20230315
  8. LINAGLIPTIN [Concomitant]
     Active Substance: LINAGLIPTIN
     Dosage: 5 MILLIGRAM, QD
     Route: 048
     Dates: start: 20231229
  9. ZOLPIDEM TARTRATE [Concomitant]
     Active Substance: ZOLPIDEM TARTRATE
     Indication: Insomnia
     Dosage: 6.25 MILLIGRAM, ONSET
     Route: 048
     Dates: start: 20230211, end: 20230211
  10. ZOLPIDEM TARTRATE [Concomitant]
     Active Substance: ZOLPIDEM TARTRATE
     Dosage: 6.25 MILLIGRAM, ONSET
     Route: 048
     Dates: start: 20230213, end: 20230213
  11. ZOLPIDEM TARTRATE [Concomitant]
     Active Substance: ZOLPIDEM TARTRATE
     Dosage: 6.25 MILLIGRAM, ONSET
     Route: 048
     Dates: start: 20230221, end: 20230221
  12. ZOLPIDEM TARTRATE [Concomitant]
     Active Substance: ZOLPIDEM TARTRATE
     Dosage: 6.25 MILLIGRAM, ONSET
     Route: 048
     Dates: start: 20230319, end: 20230319
  13. ZOLPIDEM TARTRATE [Concomitant]
     Active Substance: ZOLPIDEM TARTRATE
     Dosage: 6.25 MILLIGRAM, ONSET
     Route: 048
     Dates: start: 20230330, end: 20230330
  14. EMPAGLIFLOZIN\METFORMIN HYDROCHLORIDE [Concomitant]
     Active Substance: EMPAGLIFLOZIN\METFORMIN HYDROCHLORIDE
     Indication: Diabetes mellitus
     Dosage: 1 TAB, QD
     Route: 048
     Dates: start: 20210914
  15. EMPAGLIFLOZIN\METFORMIN HYDROCHLORIDE [Concomitant]
     Active Substance: EMPAGLIFLOZIN\METFORMIN HYDROCHLORIDE
     Dosage: 1 TAB, QD
     Route: 048
     Dates: start: 20231229
  16. METHOTREXATE [Concomitant]
     Active Substance: METHOTREXATE
     Indication: Rheumatoid arthritis
     Dosage: 15 MILLIGRAM, 1/WEEK/FOR WEEK
     Route: 048
     Dates: start: 20201020
  17. CELECOXIB [Concomitant]
     Active Substance: CELECOXIB
     Indication: Pain
     Dosage: 200 MILLIGRAM, QD
     Route: 048
     Dates: start: 20201020, end: 20230209
  18. CELECOXIB [Concomitant]
     Active Substance: CELECOXIB
     Dosage: 200 MILLIGRAM, BID
     Route: 048
     Dates: start: 20230210
  19. DEXLANSOPRAZOLE [Concomitant]
     Active Substance: DEXLANSOPRAZOLE
     Indication: Gastritis prophylaxis
     Dosage: 30 MILLIGRAM, QD
     Route: 048
     Dates: start: 20201020
  20. DEXLANSOPRAZOLE [Concomitant]
     Active Substance: DEXLANSOPRAZOLE
     Dosage: 30 MILLIGRAM, QD
     Route: 048
     Dates: start: 20231207, end: 20231215
  21. DEFLAZACORT [Concomitant]
     Active Substance: DEFLAZACORT
     Indication: Rheumatoid arthritis
     Dosage: 6 MILLIGRAM, ONSET
     Route: 048
     Dates: start: 20230315, end: 20230315
  22. DEFLAZACORT [Concomitant]
     Active Substance: DEFLAZACORT
     Dosage: 3 MILLIGRAM, BID
     Route: 048
     Dates: start: 20231207, end: 20231215
  23. DEFLAZACORT [Concomitant]
     Active Substance: DEFLAZACORT
     Dosage: 3 MILLIGRAM, QD
     Route: 048
     Dates: start: 20230811
  24. DEFLAZACORT [Concomitant]
     Active Substance: DEFLAZACORT
     Dosage: 6 MILLIGRAM, QD
     Route: 048
     Dates: start: 20230811
  25. CAL D [CALCIUM CARBONATE;COLECALCIFEROL] [Concomitant]
     Indication: Prophylaxis
     Dosage: 1 TAB, QD
     Route: 048
     Dates: start: 20210126
  26. FOLIC ACID [Concomitant]
     Active Substance: FOLIC ACID
     Indication: Prophylaxis
     Dosage: 1 MILLIGRAM, QD
     Route: 048
     Dates: start: 20201020
  27. FOLIC ACID [Concomitant]
     Active Substance: FOLIC ACID
     Indication: Folate deficiency
     Dosage: 1 MILLIGRAM, QD
     Route: 048
     Dates: start: 20231207, end: 20231215
  28. TELMISARTAN [Concomitant]
     Active Substance: TELMISARTAN
     Indication: Hypertension
     Dosage: 40 MILLIGRAM, QD
     Route: 048
     Dates: start: 20211116
  29. TELMISARTAN [Concomitant]
     Active Substance: TELMISARTAN
     Dosage: 40 MILLIGRAM, QD
     Route: 048
     Dates: start: 20231229
  30. TELMISARTAN [Concomitant]
     Active Substance: TELMISARTAN
     Dosage: 40 MILLIGRAM, QD
     Route: 048
     Dates: start: 20230802
  31. REBAMIPIDE [Concomitant]
     Active Substance: REBAMIPIDE
     Indication: Gastritis prophylaxis
     Dosage: 100 MILLIGRAM, QD
     Route: 048
     Dates: start: 20220317
  32. REBAMIPIDE [Concomitant]
     Active Substance: REBAMIPIDE
     Dosage: 150 MILLIGRAM, BID
     Route: 048
     Dates: start: 20231207, end: 20231215
  33. REBAMIPIDE [Concomitant]
     Active Substance: REBAMIPIDE
     Dosage: 150 MILLIGRAM, QD
     Route: 048
     Dates: start: 20231229
  34. REBAMIPIDE [Concomitant]
     Active Substance: REBAMIPIDE
     Dosage: 150 MILLIGRAM, BID
     Route: 048
     Dates: start: 20230502
  35. PREDNISOLONE [Concomitant]
     Active Substance: PREDNISOLONE
     Indication: Rheumatoid arthritis
     Dosage: 10 MILLIGRAM, QD
     Route: 048
     Dates: start: 20230331
  36. PREDNISOLONE [Concomitant]
     Active Substance: PREDNISOLONE
     Dosage: 5 MILLIGRAM, QD
     Route: 048
     Dates: start: 20230331
  37. METFORMIN [Concomitant]
     Active Substance: METFORMIN HYDROCHLORIDE
     Indication: Diabetes mellitus
     Dosage: 250 MILLIGRAM, QD
     Route: 048
     Dates: start: 20220215
  38. METFORMIN [Concomitant]
     Active Substance: METFORMIN HYDROCHLORIDE
     Dosage: 500 MILLIGRAM, QD
     Route: 048
     Dates: start: 20231229
  39. METFORMIN [Concomitant]
     Active Substance: METFORMIN HYDROCHLORIDE
     Dosage: 500 MILLIGRAM, QD
     Route: 048
     Dates: start: 20230802
  40. LIDOCAINE [Concomitant]
     Active Substance: LIDOCAINE
     Indication: Antiinflammatory therapy
     Dosage: 10 MILLIGRAM, ONSET
     Route: 014
     Dates: start: 20230317, end: 20230317
  41. TRAMADOL [Concomitant]
     Active Substance: TRAMADOL\TRAMADOL HYDROCHLORIDE
     Indication: Antiinflammatory therapy
     Dosage: 50 MILLIGRAM, ONSET
     Route: 042
     Dates: start: 20230209, end: 20230209
  42. TRAMADOL [Concomitant]
     Active Substance: TRAMADOL\TRAMADOL HYDROCHLORIDE
     Indication: Pain
     Dosage: 100 MILLIGRAM, ONSET
     Route: 042
     Dates: start: 20230212, end: 20230212
  43. TRAMADOL [Concomitant]
     Active Substance: TRAMADOL\TRAMADOL HYDROCHLORIDE
     Dosage: 100 MILLIGRAM, ONSET
     Route: 042
     Dates: start: 20230214, end: 20230214
  44. TRAMADOL [Concomitant]
     Active Substance: TRAMADOL\TRAMADOL HYDROCHLORIDE
     Dosage: 100 MILLIGRAM, ONSET
     Route: 042
     Dates: start: 20230217, end: 20230217
  45. TRAMADOL [Concomitant]
     Active Substance: TRAMADOL\TRAMADOL HYDROCHLORIDE
     Dosage: 100 MILLIGRAM, ONSET
     Route: 042
     Dates: start: 20230218, end: 20230218
  46. TRAMADOL [Concomitant]
     Active Substance: TRAMADOL\TRAMADOL HYDROCHLORIDE
     Dosage: 100 MILLIGRAM, ONSET
     Route: 042
     Dates: start: 20230219, end: 20230219
  47. TRAMADOL [Concomitant]
     Active Substance: TRAMADOL\TRAMADOL HYDROCHLORIDE
     Dosage: 100 MILLIGRAM, ONSET
     Route: 042
     Dates: start: 20230221, end: 20230221
  48. TRAMADOL [Concomitant]
     Active Substance: TRAMADOL\TRAMADOL HYDROCHLORIDE
     Dosage: 100 MILLIGRAM, ONSET
     Route: 042
     Dates: start: 20230225, end: 20230225
  49. TRAMADOL [Concomitant]
     Active Substance: TRAMADOL\TRAMADOL HYDROCHLORIDE
     Dosage: 80 MILLIGRAM, ONSET
     Route: 014
     Dates: start: 20230317, end: 20230317
  50. METHYLPREDNISOLONE [Concomitant]
     Active Substance: METHYLPREDNISOLONE
     Indication: Rheumatoid arthritis
     Dosage: 20 MILLIGRAM, QD
     Route: 042
     Dates: start: 20230315, end: 20230330
  51. ELCATONIN [Concomitant]
     Active Substance: ELCATONIN
     Indication: Prophylaxis
     Dosage: 10 IU
     Route: 030
     Dates: start: 20230210, end: 20230224
  52. ELCATONIN [Concomitant]
     Active Substance: ELCATONIN
     Dosage: 10 IU, 3/WEEK
     Route: 030
     Dates: start: 20230316, end: 20230330
  53. CLONAZEPAM [Concomitant]
     Active Substance: CLONAZEPAM
     Indication: Pain
     Dosage: 0.5 MILLIGRAM, QD
     Route: 048
  54. BESZYME [Concomitant]
     Indication: Prophylaxis
     Dosage: 1 TAB, ONSET
     Route: 048
     Dates: start: 20230214, end: 20230214
  55. SITAGLIPTIN PHOSPHATE [Concomitant]
     Active Substance: SITAGLIPTIN PHOSPHATE
     Indication: Diabetes mellitus
     Dosage: 100 MILLIGRAM, QD
     Route: 048
     Dates: start: 20210914
  56. KETOPROFEN [Concomitant]
     Active Substance: KETOPROFEN
     Indication: Pain
     Dosage: 30 MILLIGRAM, PRN
     Route: 062
     Dates: start: 20230213, end: 20230225
  57. INSULIN GLULISINE [Concomitant]
     Active Substance: INSULIN GLULISINE
     Indication: Diabetes mellitus
     Dosage: 5 IU, ONSET
     Route: 058
     Dates: start: 20230223, end: 20230223
  58. TRIAMCINOLONE [Concomitant]
     Active Substance: TRIAMCINOLONE
     Indication: Antiinflammatory therapy
     Dosage: 40 MILLIGRAM, ONSET
     Dates: start: 20230223, end: 20230223
  59. GLIMEPIRIDE\METFORMIN [Concomitant]
     Active Substance: GLIMEPIRIDE\METFORMIN
     Indication: Diabetes mellitus
     Dosage: 1 TAB, BID
     Route: 048
     Dates: start: 20210914
  60. EZETIMIBE\ROSUVASTATIN [Concomitant]
     Active Substance: EZETIMIBE\ROSUVASTATIN
     Indication: Hyperlipidaemia
     Dosage: 1 TAB, QD
     Route: 048
     Dates: start: 20231229
  61. EZETIMIBE\ROSUVASTATIN [Concomitant]
     Active Substance: EZETIMIBE\ROSUVASTATIN
     Dosage: 1 TAB, QD
     Route: 048
     Dates: start: 20230802
  62. CAROL-F [Concomitant]
     Indication: Rheumatoid arthritis
     Dosage: 1 TAB, TID
     Route: 048
     Dates: start: 20231128, end: 20231216
  63. GLIMEPIRIDE [Concomitant]
     Active Substance: GLIMEPIRIDE
     Indication: Diabetes mellitus
     Dosage: 2 MG, QD
     Route: 048
     Dates: start: 20231229
  64. GLIMEPIRIDE [Concomitant]
     Active Substance: GLIMEPIRIDE
     Dosage: 2 MG, QD
     Route: 048
     Dates: start: 20230802
  65. BROMHEXINE [Concomitant]
     Active Substance: BROMHEXINE
     Indication: Productive cough
     Dosage: 8 MG, TID
     Route: 048
     Dates: start: 20240102, end: 20240111
  66. LAFUTIDINE [Concomitant]
     Active Substance: LAFUTIDINE
     Indication: Gastritis prophylaxis
     Dosage: 10 MG, BID
     Route: 048
     Dates: start: 20231207, end: 20231216
  67. DULACKHAN EASY [Concomitant]
     Indication: Constipation
     Dosage: 15 MILLILITER, 1 PACK, TID
     Route: 048
     Dates: start: 20231211, end: 20231216
  68. CALCIUM POLYCARBOPHIL [Concomitant]
     Active Substance: CALCIUM POLYCARBOPHIL
     Indication: Anal fistula
     Dosage: 625 MG, TID
     Route: 048
     Dates: start: 20230802
  69. NAFTAZONE [Concomitant]
     Active Substance: NAFTAZONE
     Indication: Anal fistula
     Dosage: 10 MG, TID
     Route: 048
     Dates: start: 20230802
  70. INSULIN NOS [Concomitant]
     Active Substance: INSULIN NOS
     Indication: Diabetes mellitus
     Dosage: 3 UNIT, ONSET
     Route: 058
     Dates: start: 20230802
  71. ULTRACET ER SEMI [Concomitant]
     Indication: Pain
     Dosage: 1 TAB, BID
     Route: 048
     Dates: start: 20230802
  72. LOPERAMIDE HYDROCHLORIDE [Concomitant]
     Active Substance: LOPERAMIDE HYDROCHLORIDE
     Indication: Diarrhoea
     Dosage: 2 MG, ONSET
     Route: 048
     Dates: start: 20240106, end: 20240106
  73. LOPERAMIDE HYDROCHLORIDE [Concomitant]
     Active Substance: LOPERAMIDE HYDROCHLORIDE
     Dosage: 2 MG, ONSET
     Route: 048
     Dates: start: 20240106, end: 20240106
  74. LOPERAMIDE HYDROCHLORIDE [Concomitant]
     Active Substance: LOPERAMIDE HYDROCHLORIDE
     Dosage: 2 MG, ONSET
     Route: 048
     Dates: start: 20240107, end: 20240107

REACTIONS (6)
  - Spinal compression fracture [Recovered/Resolved]
  - Rheumatoid arthritis [Recovered/Resolved]
  - Anal fistula [Recovered/Resolved]
  - Cellulitis [Recovering/Resolving]
  - Infusion site pustule [Recovered/Resolved]
  - Insomnia [Recovered/Resolved]

NARRATIVE: CASE EVENT DATE: 20230202
